FAERS Safety Report 24407512 (Version 6)
Quarter: 2025Q4

REPORT INFORMATION
  Report Type: Spontaneous
  Country: CA (occurrence: CA)
  Receive Date: 20241007
  Receipt Date: 20251225
  Transmission Date: 20260117
  Serious: Yes (Death, Life-Threatening, Hospitalization, Other)
  Sender: ALEXION PHARMACEUTICALS
  Company Number: CA-TAKEDA-2024TUS093362

PATIENT
  Age: 65 Year
  Sex: Male

DRUGS (324)
  1. PULMICORT TURBUHALER [Suspect]
     Active Substance: BUDESONIDE
     Dosage: UNK
     Route: 065
  2. PULMICORT TURBUHALER [Suspect]
     Active Substance: BUDESONIDE
     Dosage: UNK
     Route: 065
  3. FORMOTEROL FUMARATE [Suspect]
     Active Substance: FORMOTEROL FUMARATE
     Dosage: UNK
     Route: 065
  4. CANDESARTAN CILEXETIL [Suspect]
     Active Substance: CANDESARTAN CILEXETIL
     Dosage: UNK
     Route: 065
  5. BUDESONIDE\FORMOTEROL FUMARATE [Suspect]
     Active Substance: BUDESONIDE\FORMOTEROL FUMARATE
     Indication: Product used for unknown indication
     Dosage: UNK
     Route: 065
  6. BUDESONIDE\FORMOTEROL FUMARATE [Suspect]
     Active Substance: BUDESONIDE\FORMOTEROL FUMARATE
     Dosage: UNK
  7. ADVAIR HFA [Suspect]
     Active Substance: FLUTICASONE PROPIONATE\SALMETEROL XINAFOATE
     Indication: Product used for unknown indication
     Dosage: UNK
     Route: 065
  8. ADVAIR HFA [Suspect]
     Active Substance: FLUTICASONE PROPIONATE\SALMETEROL XINAFOATE
     Dosage: UNK
     Route: 065
  9. ADVAIR HFA [Suspect]
     Active Substance: FLUTICASONE PROPIONATE\SALMETEROL XINAFOATE
     Dosage: UNK
     Route: 065
  10. ADVAIR HFA [Suspect]
     Active Substance: FLUTICASONE PROPIONATE\SALMETEROL XINAFOATE
     Dosage: UNK
     Route: 065
  11. ADVAIR HFA [Suspect]
     Active Substance: FLUTICASONE PROPIONATE\SALMETEROL XINAFOATE
     Dosage: UNK
     Route: 065
  12. ADVAIR HFA [Suspect]
     Active Substance: FLUTICASONE PROPIONATE\SALMETEROL XINAFOATE
     Dosage: UNK
     Route: 065
  13. BREO ELLIPTA [Suspect]
     Active Substance: FLUTICASONE FUROATE\VILANTEROL TRIFENATATE
     Indication: Product used for unknown indication
     Dosage: UNK
     Route: 065
  14. BREO ELLIPTA [Suspect]
     Active Substance: FLUTICASONE FUROATE\VILANTEROL TRIFENATATE
     Dosage: UNK
     Route: 065
  15. BREO ELLIPTA [Suspect]
     Active Substance: FLUTICASONE FUROATE\VILANTEROL TRIFENATATE
     Dosage: UNK
     Route: 065
  16. BREO ELLIPTA [Suspect]
     Active Substance: FLUTICASONE FUROATE\VILANTEROL TRIFENATATE
     Dosage: UNK
     Route: 065
  17. BREO ELLIPTA [Suspect]
     Active Substance: FLUTICASONE FUROATE\VILANTEROL TRIFENATATE
     Dosage: UNK
     Route: 065
  18. BREO ELLIPTA [Suspect]
     Active Substance: FLUTICASONE FUROATE\VILANTEROL TRIFENATATE
     Dosage: UNK
     Route: 065
  19. CLOTRIMAZOLE [Suspect]
     Active Substance: CLOTRIMAZOLE
     Indication: Product used for unknown indication
     Dosage: 1 DOSAGE FORM, QD
     Route: 065
  20. CLOTRIMAZOLE [Suspect]
     Active Substance: CLOTRIMAZOLE
     Dosage: 1 DOSAGE FORM
     Route: 065
  21. DUTASTERIDE [Suspect]
     Active Substance: DUTASTERIDE
     Indication: Product used for unknown indication
     Dosage: UNK
     Route: 065
  22. DUTASTERIDE [Suspect]
     Active Substance: DUTASTERIDE
     Dosage: UNK
     Route: 065
  23. DUTASTERIDE [Suspect]
     Active Substance: DUTASTERIDE
     Dosage: UNK
     Route: 065
  24. DUTASTERIDE [Suspect]
     Active Substance: DUTASTERIDE
     Dosage: UNK
     Route: 065
  25. DUTASTERIDE [Suspect]
     Active Substance: DUTASTERIDE
     Dosage: UNK
     Route: 065
  26. DUTASTERIDE [Suspect]
     Active Substance: DUTASTERIDE
     Dosage: UNK
     Route: 065
  27. DUTASTERIDE [Suspect]
     Active Substance: DUTASTERIDE
     Dosage: UNK
     Route: 065
  28. ELIQUIS [Suspect]
     Active Substance: APIXABAN
     Indication: Product used for unknown indication
     Dosage: UNK
     Route: 065
  29. ELIQUIS [Suspect]
     Active Substance: APIXABAN
     Dosage: UNK
     Route: 065
  30. ELIQUIS [Suspect]
     Active Substance: APIXABAN
     Dosage: 750 MILLIGRAM, QD
     Route: 065
  31. FUROSEMIDE [Suspect]
     Active Substance: FUROSEMIDE
     Indication: Product used for unknown indication
     Dosage: UNK
     Route: 065
  32. FUROSEMIDE [Suspect]
     Active Substance: FUROSEMIDE
     Dosage: UNK
     Route: 065
  33. FUROSEMIDE [Suspect]
     Active Substance: FUROSEMIDE
     Dosage: UNK, QD
     Route: 065
  34. FUROSEMIDE [Suspect]
     Active Substance: FUROSEMIDE
     Dosage: 40 MILLIGRAM, QD
     Route: 065
  35. FUROSEMIDE [Suspect]
     Active Substance: FUROSEMIDE
     Dosage: UNK, QD
     Route: 065
  36. FUROSEMIDE [Suspect]
     Active Substance: FUROSEMIDE
     Dosage: UNK, QD
     Route: 065
  37. FUROSEMIDE [Suspect]
     Active Substance: FUROSEMIDE
     Dosage: UNK, QD
     Route: 065
  38. FUROSEMIDE [Suspect]
     Active Substance: FUROSEMIDE
     Dosage: UNK, QD
     Route: 065
  39. FUROSEMIDE [Suspect]
     Active Substance: FUROSEMIDE
     Dosage: UNK
     Route: 065
  40. FUROSEMIDE [Suspect]
     Active Substance: FUROSEMIDE
     Dosage: UNK, QD
     Route: 065
  41. FUROSEMIDE [Suspect]
     Active Substance: FUROSEMIDE
     Dosage: UNK, QD
     Route: 065
  42. FUROSEMIDE [Suspect]
     Active Substance: FUROSEMIDE
     Dosage: UNK, QD
     Route: 065
  43. FUROSEMIDE [Suspect]
     Active Substance: FUROSEMIDE
     Dosage: UNK, QD
     Route: 065
  44. FUROSEMIDE [Suspect]
     Active Substance: FUROSEMIDE
     Dosage: UNK, QD
     Route: 065
  45. FUROSEMIDE [Suspect]
     Active Substance: FUROSEMIDE
     Dosage: 2 DOSAGE FORM, QD
     Route: 065
  46. FUROSEMIDE [Suspect]
     Active Substance: FUROSEMIDE
     Dosage: 1 DOSAGE FORM, QD
     Route: 065
  47. FUROSEMIDE [Suspect]
     Active Substance: FUROSEMIDE
     Dosage: 1 DOSAGE FORM, QD
     Route: 065
  48. FUROSEMIDE [Suspect]
     Active Substance: FUROSEMIDE
     Dosage: 40 MILLIGRAM
     Route: 065
  49. FUROSEMIDE [Suspect]
     Active Substance: FUROSEMIDE
     Dosage: 1 MILLIGRAM, QD
     Route: 065
  50. FUROSEMIDE [Suspect]
     Active Substance: FUROSEMIDE
     Dosage: UNK
     Route: 065
  51. FUROSEMIDE [Suspect]
     Active Substance: FUROSEMIDE
     Dosage: UNK, QD
     Route: 065
  52. FUROSEMIDE [Suspect]
     Active Substance: FUROSEMIDE
     Dosage: UNK, QD
     Route: 065
  53. FUROSEMIDE [Suspect]
     Active Substance: FUROSEMIDE
     Dosage: UNK
     Route: 065
  54. FUROSEMIDE [Suspect]
     Active Substance: FUROSEMIDE
     Dosage: UNK, QD
     Route: 065
  55. FUROSEMIDE [Suspect]
     Active Substance: FUROSEMIDE
     Dosage: UNK, QD
     Route: 065
  56. FUROSEMIDE [Suspect]
     Active Substance: FUROSEMIDE
     Dosage: UNK, QD
     Route: 065
  57. FUROSEMIDE [Suspect]
     Active Substance: FUROSEMIDE
     Dosage: UNK, QD
     Route: 065
  58. FUROSEMIDE [Suspect]
     Active Substance: FUROSEMIDE
     Dosage: UNK, QD
     Route: 065
  59. FUROSEMIDE [Suspect]
     Active Substance: FUROSEMIDE
     Dosage: UNK
     Route: 065
  60. FUROSEMIDE [Suspect]
     Active Substance: FUROSEMIDE
     Dosage: UNK, QD
     Route: 065
  61. FUROSEMIDE [Suspect]
     Active Substance: FUROSEMIDE
     Dosage: UNK, QD
     Route: 065
  62. FUROSEMIDE [Suspect]
     Active Substance: FUROSEMIDE
     Dosage: UNK
     Route: 065
  63. FUROSEMIDE [Suspect]
     Active Substance: FUROSEMIDE
     Dosage: UNK, QD
     Route: 065
  64. FUROSEMIDE [Suspect]
     Active Substance: FUROSEMIDE
     Dosage: UNK, QD
     Route: 065
  65. FUROSEMIDE [Suspect]
     Active Substance: FUROSEMIDE
     Dosage: UNK, QD
     Route: 065
  66. FUROSEMIDE [Suspect]
     Active Substance: FUROSEMIDE
     Dosage: UNK, QD
     Route: 065
  67. FUROSEMIDE [Suspect]
     Active Substance: FUROSEMIDE
     Dosage: UNK, QD
     Route: 065
  68. FUROSEMIDE [Suspect]
     Active Substance: FUROSEMIDE
     Dosage: UNK
     Route: 065
  69. FUROSEMIDE [Suspect]
     Active Substance: FUROSEMIDE
     Dosage: UNK, QD
     Route: 065
  70. FUROSEMIDE [Suspect]
     Active Substance: FUROSEMIDE
     Dosage: UNK, QD
     Route: 065
  71. FUROSEMIDE [Suspect]
     Active Substance: FUROSEMIDE
     Dosage: UNK
     Route: 065
  72. FUROSEMIDE [Suspect]
     Active Substance: FUROSEMIDE
     Dosage: UNK, QD
     Route: 065
  73. FUROSEMIDE [Suspect]
     Active Substance: FUROSEMIDE
     Dosage: UNK, QD
     Route: 065
  74. FUROSEMIDE [Suspect]
     Active Substance: FUROSEMIDE
     Dosage: UNK, QD
     Route: 065
  75. FUROSEMIDE [Suspect]
     Active Substance: FUROSEMIDE
     Dosage: UNK, QD
     Route: 065
  76. FUROSEMIDE [Suspect]
     Active Substance: FUROSEMIDE
     Dosage: UNK, QD
     Route: 065
  77. FUROSEMIDE [Suspect]
     Active Substance: FUROSEMIDE
     Dosage: UNK
     Route: 065
  78. FUROSEMIDE [Suspect]
     Active Substance: FUROSEMIDE
     Dosage: UNK, QD
     Route: 065
  79. FUROSEMIDE [Suspect]
     Active Substance: FUROSEMIDE
     Dosage: UNK, QD
     Route: 065
  80. GLUCAGON [Suspect]
     Active Substance: GLUCAGON
     Indication: Product used for unknown indication
     Dosage: 1 MILLIGRAM
     Route: 065
  81. GLUCAGON [Suspect]
     Active Substance: GLUCAGON
     Dosage: 1 MILLIGRAM, QD
     Route: 065
  82. GLUCAGON [Suspect]
     Active Substance: GLUCAGON
     Dosage: UNK
     Route: 065
  83. IMURAN [Suspect]
     Active Substance: AZATHIOPRINE
     Indication: Product used for unknown indication
     Dosage: 1 DOSAGE FORM, QD
     Route: 065
  84. INSULIN GLARGINE [Suspect]
     Active Substance: INSULIN GLARGINE
     Indication: Product used for unknown indication
     Dosage: 1 DOSAGE FORM, QD
  85. INSULIN GLARGINE [Suspect]
     Active Substance: INSULIN GLARGINE
     Indication: Product used for unknown indication
     Dosage: UNK, QD
  86. INSULIN GLARGINE [Suspect]
     Active Substance: INSULIN GLARGINE
     Dosage: UNK, QD
  87. INSULIN GLARGINE [Suspect]
     Active Substance: INSULIN GLARGINE
     Dosage: UNK
  88. INSULIN GLARGINE [Suspect]
     Active Substance: INSULIN GLARGINE
     Dosage: UNK, QD
  89. INSULIN GLARGINE [Suspect]
     Active Substance: INSULIN GLARGINE
     Dosage: UNK
  90. INSULIN GLARGINE [Suspect]
     Active Substance: INSULIN GLARGINE
     Dosage: 1 DOSAGE FORM
  91. INSULIN GLARGINE [Suspect]
     Active Substance: INSULIN GLARGINE
     Dosage: UNK, QD
  92. INSULIN GLARGINE [Suspect]
     Active Substance: INSULIN GLARGINE
     Dosage: 1 DOSAGE FORM
  93. INSULIN GLARGINE [Suspect]
     Active Substance: INSULIN GLARGINE
     Dosage: 1 DOSAGE FORM, QD
  94. INSULIN GLARGINE [Suspect]
     Active Substance: INSULIN GLARGINE
     Dosage: 1 DOSAGE FORM, QD
  95. INSULIN GLARGINE [Suspect]
     Active Substance: INSULIN GLARGINE
     Dosage: UNK, QD
  96. INSULIN GLARGINE [Suspect]
     Active Substance: INSULIN GLARGINE
     Dosage: UNK, QD
  97. INSULIN GLARGINE [Suspect]
     Active Substance: INSULIN GLARGINE
     Dosage: UNK
  98. INSULIN GLARGINE [Suspect]
     Active Substance: INSULIN GLARGINE
     Dosage: UNK, QD
  99. INSULIN GLARGINE [Suspect]
     Active Substance: INSULIN GLARGINE
     Dosage: UNK
  100. INSULIN GLARGINE [Suspect]
     Active Substance: INSULIN GLARGINE
     Dosage: UNK, QD
  101. INSULIN GLARGINE [Suspect]
     Active Substance: INSULIN GLARGINE
     Dosage: UNK, QD
  102. INSULIN GLARGINE [Suspect]
     Active Substance: INSULIN GLARGINE
     Dosage: UNK, QD
  103. INSULIN GLARGINE [Suspect]
     Active Substance: INSULIN GLARGINE
     Dosage: UNK
  104. INSULIN GLARGINE [Suspect]
     Active Substance: INSULIN GLARGINE
     Dosage: UNK, QD
  105. INSULIN GLARGINE [Suspect]
     Active Substance: INSULIN GLARGINE
     Dosage: UNK
  106. INSULIN GLARGINE [Suspect]
     Active Substance: INSULIN GLARGINE
     Dosage: UNK, QD
  107. INSULIN GLARGINE [Suspect]
     Active Substance: INSULIN GLARGINE
     Dosage: UNK, QD
  108. INSULIN GLARGINE [Suspect]
     Active Substance: INSULIN GLARGINE
     Dosage: UNK, QD
  109. INSULIN GLARGINE [Suspect]
     Active Substance: INSULIN GLARGINE
     Dosage: UNK
  110. INSULIN GLARGINE [Suspect]
     Active Substance: INSULIN GLARGINE
     Dosage: UNK, QD
  111. INSULIN GLARGINE [Suspect]
     Active Substance: INSULIN GLARGINE
     Dosage: UNK
  112. INSULIN GLARGINE [Suspect]
     Active Substance: INSULIN GLARGINE
     Dosage: UNK, QD
  113. INSULIN GLARGINE [Suspect]
     Active Substance: INSULIN GLARGINE
     Dosage: UNK, QD
  114. INSULIN GLARGINE [Suspect]
     Active Substance: INSULIN GLARGINE
     Dosage: UNK, QD
  115. INSULIN GLARGINE [Suspect]
     Active Substance: INSULIN GLARGINE
     Dosage: UNK
  116. INSULIN GLARGINE [Suspect]
     Active Substance: INSULIN GLARGINE
     Dosage: UNK, QD
  117. INSULIN GLARGINE [Suspect]
     Active Substance: INSULIN GLARGINE
     Dosage: UNK
  118. INSULIN GLARGINE [Suspect]
     Active Substance: INSULIN GLARGINE
     Dosage: UNK, QD
  119. INSULIN GLARGINE [Suspect]
     Active Substance: INSULIN GLARGINE
     Dosage: UNK, QD
  120. INSULIN GLARGINE [Suspect]
     Active Substance: INSULIN GLARGINE
     Dosage: UNK, QD
  121. INSULIN GLARGINE [Suspect]
     Active Substance: INSULIN GLARGINE
     Dosage: UNK
  122. LASIX [Suspect]
     Active Substance: FUROSEMIDE
     Indication: Product used for unknown indication
     Dosage: 1 DOSAGE FORM, QD
     Route: 065
  123. LASIX [Suspect]
     Active Substance: FUROSEMIDE
     Dosage: 1 DOSAGE FORM, QD
     Route: 065
  124. LASIX [Suspect]
     Active Substance: FUROSEMIDE
     Dosage: UNK
     Route: 065
  125. LASIX [Suspect]
     Active Substance: FUROSEMIDE
     Dosage: UNK
     Route: 065
  126. LASIX [Suspect]
     Active Substance: FUROSEMIDE
     Dosage: UNK
     Route: 065
  127. LASIX [Suspect]
     Active Substance: FUROSEMIDE
     Dosage: UNK
     Route: 065
  128. LASIX [Suspect]
     Active Substance: FUROSEMIDE
     Dosage: UNK
     Route: 065
  129. UMECLIDINIUM BROMIDE\VILANTEROL TRIFENATATE [Suspect]
     Active Substance: UMECLIDINIUM BROMIDE\VILANTEROL TRIFENATATE
     Indication: Product used for unknown indication
     Dosage: 1 DOSAGE FORM, QD
     Route: 065
  130. UMECLIDINIUM BROMIDE\VILANTEROL TRIFENATATE [Suspect]
     Active Substance: UMECLIDINIUM BROMIDE\VILANTEROL TRIFENATATE
     Dosage: 1 DOSAGE FORM, QD
     Route: 065
  131. UMECLIDINIUM BROMIDE\VILANTEROL TRIFENATATE [Suspect]
     Active Substance: UMECLIDINIUM BROMIDE\VILANTEROL TRIFENATATE
     Dosage: 1 DOSAGE FORM
     Route: 065
  132. UMECLIDINIUM BROMIDE\VILANTEROL TRIFENATATE [Suspect]
     Active Substance: UMECLIDINIUM BROMIDE\VILANTEROL TRIFENATATE
     Dosage: 1 DOSAGE FORM
     Route: 065
  133. UMECLIDINIUM BROMIDE\VILANTEROL TRIFENATATE [Suspect]
     Active Substance: UMECLIDINIUM BROMIDE\VILANTEROL TRIFENATATE
     Dosage: UNK, QD
     Route: 065
  134. UMECLIDINIUM BROMIDE\VILANTEROL TRIFENATATE [Suspect]
     Active Substance: UMECLIDINIUM BROMIDE\VILANTEROL TRIFENATATE
     Dosage: 1 DOSAGE FORM, QD
     Route: 065
  135. UMECLIDINIUM BROMIDE\VILANTEROL TRIFENATATE [Suspect]
     Active Substance: UMECLIDINIUM BROMIDE\VILANTEROL TRIFENATATE
     Dosage: 1 DOSAGE FORM, QD
     Route: 065
  136. UMECLIDINIUM BROMIDE\VILANTEROL TRIFENATATE [Suspect]
     Active Substance: UMECLIDINIUM BROMIDE\VILANTEROL TRIFENATATE
     Dosage: UNK, QD
     Route: 065
  137. UMECLIDINIUM BROMIDE\VILANTEROL TRIFENATATE [Suspect]
     Active Substance: UMECLIDINIUM BROMIDE\VILANTEROL TRIFENATATE
     Dosage: UNK, QD
     Route: 065
  138. UMECLIDINIUM BROMIDE\VILANTEROL TRIFENATATE [Suspect]
     Active Substance: UMECLIDINIUM BROMIDE\VILANTEROL TRIFENATATE
     Dosage: UNK, QD
     Route: 065
  139. UMECLIDINIUM BROMIDE\VILANTEROL TRIFENATATE [Suspect]
     Active Substance: UMECLIDINIUM BROMIDE\VILANTEROL TRIFENATATE
     Dosage: UNK, QD
     Route: 065
  140. UMECLIDINIUM BROMIDE\VILANTEROL TRIFENATATE [Suspect]
     Active Substance: UMECLIDINIUM BROMIDE\VILANTEROL TRIFENATATE
     Dosage: UNK, QD
     Route: 065
  141. UMECLIDINIUM BROMIDE\VILANTEROL TRIFENATATE [Suspect]
     Active Substance: UMECLIDINIUM BROMIDE\VILANTEROL TRIFENATATE
     Dosage: UNK, QD
     Route: 065
  142. UMECLIDINIUM BROMIDE\VILANTEROL TRIFENATATE [Suspect]
     Active Substance: UMECLIDINIUM BROMIDE\VILANTEROL TRIFENATATE
     Dosage: UNK, QD
     Route: 065
  143. UMECLIDINIUM BROMIDE\VILANTEROL TRIFENATATE [Suspect]
     Active Substance: UMECLIDINIUM BROMIDE\VILANTEROL TRIFENATATE
     Dosage: UNK, QD
     Route: 065
  144. UMECLIDINIUM BROMIDE\VILANTEROL TRIFENATATE [Suspect]
     Active Substance: UMECLIDINIUM BROMIDE\VILANTEROL TRIFENATATE
     Dosage: UNK, QD
     Route: 065
  145. DOXAZOSIN MESYLATE [Suspect]
     Active Substance: DOXAZOSIN MESYLATE
     Indication: Product used for unknown indication
     Dosage: 750 MILLIGRAM, QD
     Route: 065
  146. DOXAZOSIN MESYLATE [Suspect]
     Active Substance: DOXAZOSIN MESYLATE
     Dosage: 750 MILLIGRAM, QD
     Route: 065
  147. ALBUTEROL [Suspect]
     Active Substance: ALBUTEROL
     Indication: Product used for unknown indication
     Dosage: UNK
     Route: 065
  148. ALENDRONATE SODIUM [Suspect]
     Active Substance: ALENDRONATE SODIUM
     Indication: Product used for unknown indication
     Dosage: 1 DOSAGE FORM, 1/WEEK
     Route: 065
  149. ALENDRONATE SODIUM [Suspect]
     Active Substance: ALENDRONATE SODIUM
     Dosage: 100 MILLIGRAM, QD
     Route: 065
  150. ALENDRONATE SODIUM [Suspect]
     Active Substance: ALENDRONATE SODIUM
     Dosage: 70 MILLIGRAM, QD
     Route: 065
  151. ALENDRONATE SODIUM [Suspect]
     Active Substance: ALENDRONATE SODIUM
     Dosage: UNK, QD
     Route: 065
  152. ALENDRONATE SODIUM [Suspect]
     Active Substance: ALENDRONATE SODIUM
     Dosage: UNK, QD
     Route: 065
  153. ALENDRONATE SODIUM [Suspect]
     Active Substance: ALENDRONATE SODIUM
     Dosage: 70 MILLIGRAM, 1/WEEK
     Route: 065
  154. ALENDRONATE SODIUM [Suspect]
     Active Substance: ALENDRONATE SODIUM
     Dosage: UNK, QD
     Route: 065
  155. ALENDRONATE SODIUM [Suspect]
     Active Substance: ALENDRONATE SODIUM
     Dosage: 100 MILLIGRAM, QD
     Route: 065
  156. ALENDRONATE SODIUM [Suspect]
     Active Substance: ALENDRONATE SODIUM
     Dosage: 70 MILLIGRAM, 1/WEEK
     Route: 065
  157. ALENDRONATE SODIUM [Suspect]
     Active Substance: ALENDRONATE SODIUM
     Dosage: 1 DOSAGE FORM
     Route: 065
  158. ALENDRONATE SODIUM [Suspect]
     Active Substance: ALENDRONATE SODIUM
     Dosage: 1 DOSAGE FORM, 1/WEEK
     Route: 065
  159. ALENDRONATE SODIUM [Suspect]
     Active Substance: ALENDRONATE SODIUM
     Dosage: 70 MILLIGRAM
     Route: 065
  160. ALENDRONATE SODIUM [Suspect]
     Active Substance: ALENDRONATE SODIUM
     Dosage: 1 DOSAGE FORM
     Route: 065
  161. ALENDRONATE SODIUM [Suspect]
     Active Substance: ALENDRONATE SODIUM
     Dosage: 70 MILLIGRAM, 1/WEEK
     Route: 065
  162. ALENDRONATE SODIUM [Suspect]
     Active Substance: ALENDRONATE SODIUM
     Dosage: UNK, 1/WEEK
     Route: 065
  163. ALENDRONATE SODIUM [Suspect]
     Active Substance: ALENDRONATE SODIUM
     Dosage: 1 DOSAGE FORM
     Route: 065
  164. ALENDRONATE SODIUM [Suspect]
     Active Substance: ALENDRONATE SODIUM
     Dosage: 1 DOSAGE FORM
     Route: 065
  165. ALENDRONATE SODIUM [Suspect]
     Active Substance: ALENDRONATE SODIUM
     Dosage: 1 DOSAGE FORM
     Route: 065
  166. ALENDRONATE SODIUM [Suspect]
     Active Substance: ALENDRONATE SODIUM
     Dosage: 70 MILLIGRAM
     Route: 065
  167. ALENDRONATE SODIUM [Suspect]
     Active Substance: ALENDRONATE SODIUM
     Dosage: 70 MILLIGRAM
     Route: 065
  168. ALENDRONATE SODIUM [Suspect]
     Active Substance: ALENDRONATE SODIUM
     Dosage: 1 DOSAGE FORM
     Route: 065
  169. ALENDRONATE SODIUM [Suspect]
     Active Substance: ALENDRONATE SODIUM
     Dosage: 1 DOSAGE FORM
     Route: 065
  170. ALENDRONATE SODIUM [Suspect]
     Active Substance: ALENDRONATE SODIUM
     Dosage: UNK
     Route: 065
  171. ALENDRONATE SODIUM [Suspect]
     Active Substance: ALENDRONATE SODIUM
     Dosage: UNK
     Route: 065
  172. ALENDRONATE SODIUM [Suspect]
     Active Substance: ALENDRONATE SODIUM
     Dosage: 1 DOSAGE FORM
     Route: 065
  173. AZITHROMYCIN [Suspect]
     Active Substance: AZITHROMYCIN
     Route: 065
  174. BUDESONIDE [Suspect]
     Active Substance: BUDESONIDE
     Indication: Product used for unknown indication
     Dosage: UNK
     Route: 065
  175. BUDESONIDE [Suspect]
     Active Substance: BUDESONIDE
     Dosage: UNK
     Route: 065
  176. ACTOS [Suspect]
     Active Substance: PIOGLITAZONE HYDROCHLORIDE
     Indication: Product used for unknown indication
     Dosage: UNK
     Route: 065
  177. CANDESARTAN [Suspect]
     Active Substance: CANDESARTAN
     Indication: Product used for unknown indication
     Dosage: 1 DOSAGE FORM, QD
     Route: 065
  178. CANDESARTAN [Suspect]
     Active Substance: CANDESARTAN
     Dosage: 52 MILLIGRAM, QD
     Route: 065
  179. CANDESARTAN [Suspect]
     Active Substance: CANDESARTAN
     Dosage: 500 MILLIGRAM, QD
     Route: 065
  180. CANDESARTAN [Suspect]
     Active Substance: CANDESARTAN
     Dosage: UNK, QD
     Route: 065
  181. CANDESARTAN [Suspect]
     Active Substance: CANDESARTAN
     Dosage: UNK
     Route: 065
  182. CANDESARTAN [Suspect]
     Active Substance: CANDESARTAN
     Dosage: UNK, QD
     Route: 065
  183. CANDESARTAN [Suspect]
     Active Substance: CANDESARTAN
     Dosage: UNK, QD
     Route: 065
  184. CANDESARTAN [Suspect]
     Active Substance: CANDESARTAN
     Dosage: 500 MILLIGRAM
     Route: 065
  185. CANDESARTAN [Suspect]
     Active Substance: CANDESARTAN
     Dosage: 52 MILLIGRAM, QD
     Route: 065
  186. CANDESARTAN [Suspect]
     Active Substance: CANDESARTAN
     Dosage: 32 MILLIGRAM, QD
     Route: 065
  187. CANDESARTAN [Suspect]
     Active Substance: CANDESARTAN
     Dosage: 1 DOSAGE FORM, QD
     Route: 065
  188. CANDESARTAN [Suspect]
     Active Substance: CANDESARTAN
     Dosage: UNK
     Route: 065
  189. CANDESARTAN [Suspect]
     Active Substance: CANDESARTAN
     Dosage: 32 MILLIGRAM, QD
     Route: 065
  190. CANDESARTAN [Suspect]
     Active Substance: CANDESARTAN
     Dosage: 1 DOSAGE FORM, QD
     Route: 065
  191. CANDESARTAN [Suspect]
     Active Substance: CANDESARTAN
     Dosage: UNK, QD
     Route: 065
  192. CANDESARTAN [Suspect]
     Active Substance: CANDESARTAN
     Dosage: 1 DOSAGE FORM, QD
     Route: 065
  193. CANDESARTAN [Suspect]
     Active Substance: CANDESARTAN
     Dosage: UNK
     Route: 065
  194. CANDESARTAN [Suspect]
     Active Substance: CANDESARTAN
     Dosage: 1 DOSAGE FORM, QD
     Route: 065
  195. CANDESARTAN [Suspect]
     Active Substance: CANDESARTAN
     Dosage: 32 MILLIGRAM, QD
     Route: 065
  196. CANDESARTAN [Suspect]
     Active Substance: CANDESARTAN
     Dosage: UNK, QD
     Route: 065
  197. CANDESARTAN [Suspect]
     Active Substance: CANDESARTAN
     Dosage: UNK, QD
     Route: 065
  198. CANDESARTAN [Suspect]
     Active Substance: CANDESARTAN
     Dosage: 1 DOSAGE FORM, QD
     Route: 065
  199. METFORMIN [Suspect]
     Active Substance: METFORMIN HYDROCHLORIDE
     Indication: Product used for unknown indication
     Dosage: 4 DOSAGE FORM, QD
     Route: 065
  200. METFORMIN [Suspect]
     Active Substance: METFORMIN HYDROCHLORIDE
     Dosage: UNK
     Route: 065
  201. METFORMIN [Suspect]
     Active Substance: METFORMIN HYDROCHLORIDE
     Dosage: 2 DOSAGE FORM
     Route: 065
  202. METFORMIN [Suspect]
     Active Substance: METFORMIN HYDROCHLORIDE
     Dosage: 2 DOSAGE FORM, Q12H
     Route: 065
  203. METFORMIN [Suspect]
     Active Substance: METFORMIN HYDROCHLORIDE
     Dosage: 2 DOSAGE FORM, QD
     Route: 065
  204. METFORMIN [Suspect]
     Active Substance: METFORMIN HYDROCHLORIDE
     Dosage: 1 DOSAGE FORM, QD
     Route: 065
  205. METFORMIN [Suspect]
     Active Substance: METFORMIN HYDROCHLORIDE
     Dosage: 4 DOSAGE FORM, QD
     Route: 065
  206. METFORMIN [Suspect]
     Active Substance: METFORMIN HYDROCHLORIDE
     Dosage: 1 DOSAGE FORM
     Route: 065
  207. METFORMIN [Suspect]
     Active Substance: METFORMIN HYDROCHLORIDE
     Dosage: 4 DOSAGE FORM
     Route: 065
  208. METFORMIN [Suspect]
     Active Substance: METFORMIN HYDROCHLORIDE
     Dosage: 500 MILLIGRAM, Q12H
     Route: 065
  209. METFORMIN [Suspect]
     Active Substance: METFORMIN HYDROCHLORIDE
     Dosage: 500 MILLIGRAM
     Route: 065
  210. METFORMIN [Suspect]
     Active Substance: METFORMIN HYDROCHLORIDE
     Dosage: 1000 MILLIGRAM, QD
     Route: 065
  211. PREDNISONE [Suspect]
     Active Substance: PREDNISONE
     Indication: Product used for unknown indication
     Dosage: 50 MILLIGRAM, QD
  212. PREDNISONE [Suspect]
     Active Substance: PREDNISONE
     Dosage: 50 MILLIGRAM
     Route: 065
  213. PREDNISONE [Suspect]
     Active Substance: PREDNISONE
     Dosage: 50 MILLIGRAM, QD
     Route: 065
  214. PREDNISONE [Suspect]
     Active Substance: PREDNISONE
     Dosage: 80 MILLIGRAM, QD
     Route: 065
  215. PREDNISONE [Suspect]
     Active Substance: PREDNISONE
     Dosage: UNK, QD
     Route: 065
  216. PREDNISONE [Suspect]
     Active Substance: PREDNISONE
     Dosage: 80 MILLIGRAM
     Route: 065
  217. PREDNISONE [Suspect]
     Active Substance: PREDNISONE
     Dosage: UNK, QD
     Route: 065
  218. PREDNISONE [Suspect]
     Active Substance: PREDNISONE
     Dosage: UNK, QD
     Route: 065
  219. PREDNISONE [Suspect]
     Active Substance: PREDNISONE
     Dosage: UNK
     Route: 065
  220. PREDNISONE [Suspect]
     Active Substance: PREDNISONE
     Dosage: UNK
     Route: 065
  221. PREDNISONE [Suspect]
     Active Substance: PREDNISONE
     Dosage: 1 DOSAGE FORM, QD
     Route: 065
  222. PREDNISONE [Suspect]
     Active Substance: PREDNISONE
     Dosage: 1 DOSAGE FORM, QD
     Route: 065
  223. PREDNISONE [Suspect]
     Active Substance: PREDNISONE
     Dosage: 5 MILLIGRAM, QD
     Route: 065
  224. PREDNISONE [Suspect]
     Active Substance: PREDNISONE
     Dosage: 1 DOSAGE FORM, QD
     Route: 065
  225. PREDNISONE [Suspect]
     Active Substance: PREDNISONE
     Dosage: 80 MILLIGRAM
     Route: 065
  226. PREDNISONE [Suspect]
     Active Substance: PREDNISONE
     Dosage: 80 MILLIGRAM
     Route: 065
  227. PREDNISONE [Suspect]
     Active Substance: PREDNISONE
     Dosage: 5 MILLIGRAM
     Route: 065
  228. PREDNISONE [Suspect]
     Active Substance: PREDNISONE
     Dosage: 50 MILLIGRAM
     Route: 065
  229. PREDNISONE [Suspect]
     Active Substance: PREDNISONE
     Dosage: 1 DOSAGE FORM, QD
     Route: 065
  230. PREDNISONE [Suspect]
     Active Substance: PREDNISONE
     Dosage: 80 MILLIGRAM, QD
     Route: 065
  231. PREDNISONE [Suspect]
     Active Substance: PREDNISONE
     Dosage: 50 MILLIGRAM, QD
     Route: 065
  232. PREDNISONE [Suspect]
     Active Substance: PREDNISONE
     Dosage: UNK, QD
     Route: 065
  233. PREDNISONE [Suspect]
     Active Substance: PREDNISONE
     Dosage: UNK
     Route: 065
  234. PREDNISONE [Suspect]
     Active Substance: PREDNISONE
     Dosage: 80 MILLIGRAM
     Route: 065
  235. PREDNISONE [Suspect]
     Active Substance: PREDNISONE
     Dosage: 50 MILLILITER, QD
     Route: 065
  236. DILTIAZEM [Suspect]
     Active Substance: DILTIAZEM
     Indication: Product used for unknown indication
     Dosage: UNK
     Route: 065
  237. DILTIAZEM [Suspect]
     Active Substance: DILTIAZEM
     Dosage: UNK
     Route: 065
  238. ERGOCALCIFEROL [Suspect]
     Active Substance: ERGOCALCIFEROL
     Indication: Product used for unknown indication
     Dosage: UNK
     Route: 065
  239. LEVOFLOXACIN HEMIHYDRATE [Suspect]
     Active Substance: LEVOFLOXACIN
     Indication: Product used for unknown indication
     Dosage: 1 DOSAGE FORM, QD
     Route: 065
  240. LEVOFLOXACIN HEMIHYDRATE [Suspect]
     Active Substance: LEVOFLOXACIN
     Dosage: UNK
     Route: 065
  241. LEVOFLOXACIN HEMIHYDRATE [Suspect]
     Active Substance: LEVOFLOXACIN
     Dosage: 750 MILLIGRAM
     Route: 065
  242. LEVOFLOXACIN HEMIHYDRATE [Suspect]
     Active Substance: LEVOFLOXACIN
     Dosage: 3 DOSAGE FORM, QD
     Route: 065
  243. LIRAGLUTIDE [Suspect]
     Active Substance: LIRAGLUTIDE
     Indication: Product used for unknown indication
     Dosage: UNK
     Route: 065
  244. MONTELUKAST SODIUM [Suspect]
     Active Substance: MONTELUKAST SODIUM
     Indication: Product used for unknown indication
     Dosage: UNK
     Route: 065
  245. MORNIFLUMATE [Suspect]
     Active Substance: MORNIFLUMATE
     Indication: Product used for unknown indication
     Dosage: 1 DOSAGE FORM, QD
     Route: 065
  246. MORNIFLUMATE [Suspect]
     Active Substance: MORNIFLUMATE
     Dosage: 1 DOSAGE FORM
     Route: 065
  247. MORNIFLUMATE [Suspect]
     Active Substance: MORNIFLUMATE
     Dosage: 1 DOSAGE FORM, 1/WEEK
     Route: 065
  248. MORNIFLUMATE [Suspect]
     Active Substance: MORNIFLUMATE
     Dosage: 1 DOSAGE FORM, QD
     Route: 065
  249. MORNIFLUMATE [Suspect]
     Active Substance: MORNIFLUMATE
     Dosage: 1 DOSAGE FORM, QD
     Route: 065
  250. AZITHROMYCIN DIHYDRATE [Suspect]
     Active Substance: AZITHROMYCIN DIHYDRATE
     Indication: Product used for unknown indication
     Dosage: UNK
     Route: 065
  251. AZITHROMYCIN DIHYDRATE [Suspect]
     Active Substance: AZITHROMYCIN DIHYDRATE
     Dosage: UNK, QD
     Route: 065
  252. AZITHROMYCIN DIHYDRATE [Suspect]
     Active Substance: AZITHROMYCIN DIHYDRATE
     Dosage: UNK, QD
     Route: 065
  253. AZITHROMYCIN DIHYDRATE [Suspect]
     Active Substance: AZITHROMYCIN DIHYDRATE
     Dosage: UNK, QD
     Route: 065
  254. AZITHROMYCIN DIHYDRATE [Suspect]
     Active Substance: AZITHROMYCIN DIHYDRATE
     Dosage: 250 MILLIGRAM, QD
     Route: 065
  255. AZITHROMYCIN DIHYDRATE [Suspect]
     Active Substance: AZITHROMYCIN DIHYDRATE
     Dosage: 250 MILLIGRAM, QD
     Route: 065
  256. AZITHROMYCIN DIHYDRATE [Suspect]
     Active Substance: AZITHROMYCIN DIHYDRATE
     Dosage: UNK, BID
     Route: 065
  257. AZITHROMYCIN DIHYDRATE [Suspect]
     Active Substance: AZITHROMYCIN DIHYDRATE
     Dosage: UNK, QD
     Route: 065
  258. AZITHROMYCIN DIHYDRATE [Suspect]
     Active Substance: AZITHROMYCIN DIHYDRATE
     Dosage: 2 DOSAGE FORM
     Route: 065
  259. AZITHROMYCIN DIHYDRATE [Suspect]
     Active Substance: AZITHROMYCIN DIHYDRATE
     Dosage: 2 DOSAGE FORM, QD
     Route: 065
  260. AZITHROMYCIN DIHYDRATE [Suspect]
     Active Substance: AZITHROMYCIN DIHYDRATE
     Dosage: UNK, Q12H
     Route: 065
  261. AZITHROMYCIN DIHYDRATE [Suspect]
     Active Substance: AZITHROMYCIN DIHYDRATE
     Dosage: UNK
     Route: 065
  262. AZITHROMYCIN DIHYDRATE [Suspect]
     Active Substance: AZITHROMYCIN DIHYDRATE
     Dosage: UNK, QD
     Route: 065
  263. AZITHROMYCIN DIHYDRATE [Suspect]
     Active Substance: AZITHROMYCIN DIHYDRATE
     Dosage: 2 DOSAGE FORM, QD
     Route: 065
  264. AZITHROMYCIN DIHYDRATE [Suspect]
     Active Substance: AZITHROMYCIN DIHYDRATE
     Dosage: 1 DOSAGE FORM, QD
     Route: 065
  265. AZITHROMYCIN DIHYDRATE [Suspect]
     Active Substance: AZITHROMYCIN DIHYDRATE
     Dosage: UNK, BID
     Route: 065
  266. AZITHROMYCIN DIHYDRATE [Suspect]
     Active Substance: AZITHROMYCIN DIHYDRATE
     Dosage: UNK, BID
     Route: 065
  267. AZITHROMYCIN DIHYDRATE [Suspect]
     Active Substance: AZITHROMYCIN DIHYDRATE
     Dosage: 1 DOSAGE FORM, Q12H
     Route: 065
  268. AZITHROMYCIN DIHYDRATE [Suspect]
     Active Substance: AZITHROMYCIN DIHYDRATE
     Dosage: 2 DOSAGE FORM, QD
     Route: 065
  269. AZITHROMYCIN DIHYDRATE [Suspect]
     Active Substance: AZITHROMYCIN DIHYDRATE
     Dosage: 250 MILLIGRAM
     Route: 065
  270. AZITHROMYCIN DIHYDRATE [Suspect]
     Active Substance: AZITHROMYCIN DIHYDRATE
     Dosage: UNK, BID
     Route: 065
  271. AZITHROMYCIN DIHYDRATE [Suspect]
     Active Substance: AZITHROMYCIN DIHYDRATE
     Dosage: UNK
     Route: 065
  272. RUPATADINE [Suspect]
     Active Substance: RUPATADINE
     Indication: Product used for unknown indication
     Dosage: UNK
     Route: 065
  273. SERTRALINE HYDROCHLORIDE [Suspect]
     Active Substance: SERTRALINE HYDROCHLORIDE
     Indication: Product used for unknown indication
     Dosage: UNK
     Route: 065
  274. SERTRALINE HYDROCHLORIDE [Suspect]
     Active Substance: SERTRALINE HYDROCHLORIDE
     Dosage: UNK, BID
     Route: 065
  275. SERTRALINE HYDROCHLORIDE [Suspect]
     Active Substance: SERTRALINE HYDROCHLORIDE
     Dosage: 2 DOSAGE FORM, QD
     Route: 065
  276. SERTRALINE HYDROCHLORIDE [Suspect]
     Active Substance: SERTRALINE HYDROCHLORIDE
     Dosage: 1000 MILLIGRAM, QD
     Route: 065
  277. SERTRALINE HYDROCHLORIDE [Suspect]
     Active Substance: SERTRALINE HYDROCHLORIDE
     Dosage: UNK
     Route: 065
  278. SERTRALINE HYDROCHLORIDE [Suspect]
     Active Substance: SERTRALINE HYDROCHLORIDE
     Dosage: 1 DOSAGE FORM, QD
     Route: 065
  279. SERTRALINE HYDROCHLORIDE [Suspect]
     Active Substance: SERTRALINE HYDROCHLORIDE
     Dosage: 4 DOSAGE FORM, BID
     Route: 065
  280. SERTRALINE HYDROCHLORIDE [Suspect]
     Active Substance: SERTRALINE HYDROCHLORIDE
     Dosage: 4 DOSAGE FORM, QD
     Route: 065
  281. SERTRALINE HYDROCHLORIDE [Suspect]
     Active Substance: SERTRALINE HYDROCHLORIDE
     Dosage: 500 MILLIGRAM, BID
     Route: 065
  282. SERTRALINE HYDROCHLORIDE [Suspect]
     Active Substance: SERTRALINE HYDROCHLORIDE
     Dosage: 4 DOSAGE FORM, QD
     Route: 065
  283. SERTRALINE HYDROCHLORIDE [Suspect]
     Active Substance: SERTRALINE HYDROCHLORIDE
     Dosage: 2 DOSAGE FORM, BID
     Route: 065
  284. SERTRALINE HYDROCHLORIDE [Suspect]
     Active Substance: SERTRALINE HYDROCHLORIDE
     Dosage: UNK
     Route: 065
  285. SPIRIVA [Suspect]
     Active Substance: TIOTROPIUM BROMIDE MONOHYDRATE
     Indication: Product used for unknown indication
     Dosage: 2 DOSAGE FORM, QD
     Route: 065
  286. SPIRIVA [Suspect]
     Active Substance: TIOTROPIUM BROMIDE MONOHYDRATE
     Dosage: UNK
     Route: 065
  287. SPIRIVA [Suspect]
     Active Substance: TIOTROPIUM BROMIDE MONOHYDRATE
     Dosage: UNK
     Route: 065
  288. TAMSULOSIN HYDROCHLORIDE [Suspect]
     Active Substance: TAMSULOSIN HYDROCHLORIDE
     Indication: Product used for unknown indication
     Dosage: 100 MILLIGRAM, Q12H
     Route: 065
  289. TAMSULOSIN HYDROCHLORIDE [Suspect]
     Active Substance: TAMSULOSIN HYDROCHLORIDE
     Dosage: UNK, Q12H
     Route: 065
  290. TAMSULOSIN HYDROCHLORIDE [Suspect]
     Active Substance: TAMSULOSIN HYDROCHLORIDE
     Dosage: UNK
     Route: 065
  291. TAMSULOSIN HYDROCHLORIDE [Suspect]
     Active Substance: TAMSULOSIN HYDROCHLORIDE
     Dosage: 1 MILLIGRAM, QD
     Route: 065
  292. TAMSULOSIN HYDROCHLORIDE [Suspect]
     Active Substance: TAMSULOSIN HYDROCHLORIDE
     Dosage: UNK
     Route: 065
  293. TAMSULOSIN HYDROCHLORIDE [Suspect]
     Active Substance: TAMSULOSIN HYDROCHLORIDE
     Dosage: 2 MILLIGRAM, QD
     Route: 065
  294. TAMSULOSIN HYDROCHLORIDE [Suspect]
     Active Substance: TAMSULOSIN HYDROCHLORIDE
     Dosage: UNK
     Route: 065
  295. TAMSULOSIN HYDROCHLORIDE [Suspect]
     Active Substance: TAMSULOSIN HYDROCHLORIDE
     Dosage: 1 DOSAGE FORM, QD
     Route: 065
  296. TAMSULOSIN HYDROCHLORIDE [Suspect]
     Active Substance: TAMSULOSIN HYDROCHLORIDE
     Dosage: 1 DOSAGE FORM, QD
     Route: 065
  297. TAMSULOSIN HYDROCHLORIDE [Suspect]
     Active Substance: TAMSULOSIN HYDROCHLORIDE
     Dosage: 1 DOSAGE FORM
     Route: 065
  298. TAMSULOSIN HYDROCHLORIDE [Suspect]
     Active Substance: TAMSULOSIN HYDROCHLORIDE
     Dosage: UNK UNK, QD
     Route: 065
  299. INSULIN ASPART [Suspect]
     Active Substance: INSULIN ASPART
     Indication: Product used for unknown indication
     Dosage: UNK, QD
     Route: 065
  300. INSULIN ASPART [Suspect]
     Active Substance: INSULIN ASPART
     Dosage: UNK
     Route: 065
  301. INSULIN ASPART [Suspect]
     Active Substance: INSULIN ASPART
     Dosage: UNK, QD
     Route: 065
  302. INSULIN ASPART [Suspect]
     Active Substance: INSULIN ASPART
     Dosage: UNK, QD
     Route: 065
  303. INSULIN ASPART [Suspect]
     Active Substance: INSULIN ASPART
     Dosage: UNK
     Route: 065
  304. DIETARY SUPPLEMENT\MINERALS\VITAMINS [Suspect]
     Active Substance: DIETARY SUPPLEMENT\MINERALS\VITAMINS
     Indication: Product used for unknown indication
     Dosage: UNK
     Route: 065
  305. DIETARY SUPPLEMENT\MINERALS\VITAMINS [Suspect]
     Active Substance: DIETARY SUPPLEMENT\MINERALS\VITAMINS
     Dosage: UNK
     Route: 065
  306. ESCITALOPRAM OXALATE [Suspect]
     Active Substance: ESCITALOPRAM OXALATE
     Indication: Product used for unknown indication
     Dosage: 750 MILLIGRAM, QD
     Route: 065
  307. FINASTERIDE [Suspect]
     Active Substance: FINASTERIDE
     Indication: Product used for unknown indication
     Dosage: UNK
     Route: 065
  308. FLOMAX [Suspect]
     Active Substance: TAMSULOSIN HYDROCHLORIDE
     Indication: Product used for unknown indication
     Dosage: UNK, QD
     Route: 065
  309. FLOMAX [Suspect]
     Active Substance: TAMSULOSIN HYDROCHLORIDE
     Dosage: UNK, QD
     Route: 065
  310. FLOMAX [Suspect]
     Active Substance: TAMSULOSIN HYDROCHLORIDE
     Dosage: 1 DOSAGE FORM, 1/WEEK
     Route: 065
  311. FLOMAX [Suspect]
     Active Substance: TAMSULOSIN HYDROCHLORIDE
     Dosage: UNK, 1/WEEK
     Route: 065
  312. FLOMAX [Suspect]
     Active Substance: TAMSULOSIN HYDROCHLORIDE
     Dosage: 1 DOSAGE FORM, QD
     Route: 065
  313. FLOMAX [Suspect]
     Active Substance: TAMSULOSIN HYDROCHLORIDE
     Dosage: UNK, QD
     Route: 065
  314. FLOMAX [Suspect]
     Active Substance: TAMSULOSIN HYDROCHLORIDE
     Dosage: UNK
     Route: 065
  315. FLOMAX [Suspect]
     Active Substance: TAMSULOSIN HYDROCHLORIDE
     Dosage: 1 DOSAGE FORM, QD
     Route: 065
  316. FLOMAX [Suspect]
     Active Substance: TAMSULOSIN HYDROCHLORIDE
     Dosage: UNK, QD
     Route: 065
  317. FLOMAX [Suspect]
     Active Substance: TAMSULOSIN HYDROCHLORIDE
     Dosage: 100 MILLIGRAM, QD
     Route: 065
  318. FLOMAX [Suspect]
     Active Substance: TAMSULOSIN HYDROCHLORIDE
     Dosage: UNK
     Route: 065
  319. ALENDRONIC ACID [Suspect]
     Active Substance: ALENDRONIC ACID
     Indication: Product used for unknown indication
     Dosage: UNK
     Route: 065
  320. LEVOTHYROXINE [Concomitant]
     Active Substance: LEVOTHYROXINE
     Indication: Product used for unknown indication
     Dosage: UNK
     Route: 065
  321. ROSUVASTATIN CALCIUM [Concomitant]
     Active Substance: ROSUVASTATIN CALCIUM
     Indication: Product used for unknown indication
     Dosage: UNK
     Route: 065
  322. ROSUVASTATIN CALCIUM [Concomitant]
     Active Substance: ROSUVASTATIN CALCIUM
     Indication: Product used for unknown indication
     Dosage: UNK
     Route: 065
  323. ROSUVASTATIN CALCIUM [Concomitant]
     Active Substance: ROSUVASTATIN CALCIUM
     Dosage: UNK
     Route: 065
  324. ROSUVASTATIN CALCIUM [Concomitant]
     Active Substance: ROSUVASTATIN CALCIUM
     Dosage: UNK
     Route: 065

REACTIONS (25)
  - Arteriosclerosis [Fatal]
  - Arteriosclerosis coronary artery [Fatal]
  - Asthma [Fatal]
  - Capillaritis [Fatal]
  - Condition aggravated [Fatal]
  - Conjunctivitis allergic [Fatal]
  - Death [Fatal]
  - Dust allergy [Fatal]
  - Eosinophilic granulomatosis with polyangiitis [Fatal]
  - Hypothyroidism [Fatal]
  - Hypoxia [Fatal]
  - Mite allergy [Fatal]
  - Mycotic allergy [Fatal]
  - Neuritis [Fatal]
  - Nodule [Fatal]
  - Pain in extremity [Fatal]
  - Pulmonary alveolar haemorrhage [Fatal]
  - Pulmonary embolism [Fatal]
  - Pulmonary fibrosis [Fatal]
  - Pulmonary vasculitis [Fatal]
  - Sleep disorder due to a general medical condition [Fatal]
  - Therapeutic product effect incomplete [Fatal]
  - Thrombosis [Fatal]
  - Vasculitis [Fatal]
  - Anxiety [Fatal]
